FAERS Safety Report 19237589 (Version 1)
Quarter: 2021Q2

REPORT INFORMATION
  Report Type: Spontaneous
  Country: US (occurrence: US)
  Receive Date: 20210510
  Receipt Date: 20210510
  Transmission Date: 20210717
  Serious: No
  Sender: FDA-Public Use
  Company Number: US-GLAXOSMITHKLINE-US2021097404

PATIENT
  Age: 36 Year
  Sex: Female

DRUGS (1)
  1. FLONASE ALLERGY RELIEF [Suspect]
     Active Substance: FLUTICASONE PROPIONATE
     Indication: PRODUCT USED FOR UNKNOWN INDICATION
     Dosage: UNK
     Dates: start: 20201220, end: 20210210

REACTIONS (4)
  - Nasal turbinate hypertrophy [Unknown]
  - Nasal oedema [Unknown]
  - Weight increased [Unknown]
  - Nasal inflammation [Unknown]
